FAERS Safety Report 5826961-1 (Version None)
Quarter: 2008Q3

REPORT INFORMATION
  Report Type: 
  Country: None (occurrence: None)
  Receive Date: 20080725
  Receipt Date: 20080718
  Transmission Date: 20090109
  Serious: Yes (Death)
  Sender: FDA-Public Use
  Company Number: A-CH2008-21142

PATIENT
  Age: 80 Year
  Sex: Female

DRUGS (1)
  1. TRACLEER [Suspect]
     Indication: PULMONARY HYPERTENSION
     Dosage: ORAL
     Route: 048

REACTIONS (3)
  - ACUTE MYOCARDIAL INFARCTION [None]
  - ATRIOVENTRICULAR BLOCK COMPLETE [None]
  - BRADYCARDIA [None]
